FAERS Safety Report 4545891-9 (Version None)
Quarter: 2005Q1

REPORT INFORMATION
  Report Type: 
  Country: None (occurrence: None)
  Receive Date: 20050103
  Receipt Date: 20041218
  Transmission Date: 20050727
  Serious: Yes (Life-Threatening, Hospitalization, Other)
  Sender: FDA-Public Use
  Company Number: 2004116606

PATIENT
  Age: 44 Year
  Sex: Male
  Weight: 74.8435 kg

DRUGS (2)
  1. CELEBREX [Suspect]
     Indication: INFLAMMATION
     Dosage: 200 MG (200 MG, IN 1 D)
     Dates: start: 20041106
  2. LANSOPRAZOLE [Concomitant]

REACTIONS (3)
  - CORONARY ARTERY OCCLUSION [None]
  - ELECTROCARDIOGRAM ST SEGMENT ELEVATION [None]
  - MYOCARDIAL INFARCTION [None]
